FAERS Safety Report 7475086-0 (Version None)
Quarter: 2011Q2

REPORT INFORMATION
  Report Type: 
  Country: None (occurrence: None)
  Receive Date: 20110512
  Receipt Date: 20110505
  Transmission Date: 20111010
  Serious: Yes (Hospitalization, Other)
  Sender: FDA-Public Use
  Company Number: AR-AMGEN-ARGSP2011022064

PATIENT
  Age: 50 Year
  Sex: Male
  Weight: 76 kg

DRUGS (6)
  1. OMEPRAZOLE [Concomitant]
     Dosage: UNK
  2. IBUPROFEN [Concomitant]
     Dosage: UNK
  3. ENALAPRIL [Concomitant]
     Dosage: UNK
  4. FOLIC ACID [Concomitant]
     Dosage: UNK
  5. ENBREL [Suspect]
     Indication: ANKYLOSING SPONDYLITIS
     Dosage: 50 MG, EVERY 15 DAYS
     Route: 058
     Dates: start: 20040901, end: 20110301
  6. METHOTREXATE [Concomitant]
     Dosage: UNK

REACTIONS (2)
  - URINARY TRACT OBSTRUCTION [None]
  - PROSTATITIS [None]
